FAERS Safety Report 6615305-3 (Version None)
Quarter: 2010Q1

REPORT INFORMATION
  Report Type: 
  Country: None (occurrence: None)
  Receive Date: 20100305
  Receipt Date: 20100211
  Transmission Date: 20100710
  Serious: No
  Sender: FDA-Public Use
  Company Number: A0766941A

PATIENT
  Sex: Male
  Weight: 92.7 kg

DRUGS (9)
  1. REQUIP [Suspect]
     Indication: PARKINSON'S DISEASE
     Dosage: 6MG FOUR TIMES PER DAY
     Route: 048
     Dates: start: 20010726
  2. LISINOPRIL [Concomitant]
  3. XALATAN [Concomitant]
  4. METOPROLOL TARTRATE [Concomitant]
  5. WARFARIN SODIUM [Concomitant]
  6. AZILECT [Concomitant]
  7. PROPAFENONE HCL [Concomitant]
  8. STALEVO 100 [Concomitant]
  9. RHYTHMOL [Concomitant]

REACTIONS (3)
  - HYPERSEXUALITY [None]
  - OBSESSIVE-COMPULSIVE DISORDER [None]
  - PATHOLOGICAL GAMBLING [None]
